FAERS Safety Report 11720245 (Version 3)
Quarter: 2016Q2

REPORT INFORMATION
  Report Type: Report from Study
  Country: US (occurrence: US)
  Receive Date: 20151110
  Receipt Date: 20160620
  Transmission Date: 20160815
  Serious: Yes (Other)
  Sender: FDA-Public Use
  Company Number: US-ARIAD-2015US005678

PATIENT
  Age: 43 Year
  Sex: Female
  Weight: 110 kg

DRUGS (4)
  1. ICLUSIG [Suspect]
     Active Substance: PONATINIB
     Indication: CHRONIC MYELOID LEUKAEMIA
     Dosage: 30 MG, QD
     Route: 048
     Dates: start: 20140214
  2. LISINOPRIL. [Concomitant]
     Active Substance: LISINOPRIL
     Indication: PRODUCT USED FOR UNKNOWN INDICATION
     Dosage: 40 MG, QD
     Route: 048
  3. ZOLOFT [Concomitant]
     Active Substance: SERTRALINE HYDROCHLORIDE
     Indication: PRODUCT USED FOR UNKNOWN INDICATION
     Dosage: 25 MG, QD
     Route: 048
  4. ICLUSIG [Suspect]
     Active Substance: PONATINIB
     Dosage: 15 MG, QD
     Route: 048
     Dates: start: 20140421

REACTIONS (20)
  - Night sweats [Unknown]
  - Headache [Unknown]
  - Cough [Unknown]
  - Depression [Not Recovered/Not Resolved]
  - Peripheral swelling [Unknown]
  - Gingival bleeding [Unknown]
  - Vision blurred [Unknown]
  - Exostosis [Not Recovered/Not Resolved]
  - Epistaxis [Unknown]
  - Pain in extremity [Unknown]
  - Myocardial infarction [Unknown]
  - Pancytopenia [Unknown]
  - Skin papilloma [Not Recovered/Not Resolved]
  - Fatigue [Unknown]
  - Arthralgia [Unknown]
  - Stress [Unknown]
  - Weight decreased [Unknown]
  - Transaminases increased [Unknown]
  - Pericardial effusion [Unknown]
  - Decreased appetite [Unknown]

NARRATIVE: CASE EVENT DATE: 201404
